FAERS Safety Report 4557351-X (Version None)
Quarter: 2005Q1

REPORT INFORMATION
  Report Type: 
  Country: None (occurrence: None)
  Receive Date: 20050119
  Receipt Date: 20050119
  Transmission Date: 20050727
  Serious: No
  Sender: FDA-Public Use
  Company Number: None

PATIENT
  Age: 26 Year
  Sex: Female
  Weight: 102 kg

DRUGS (3)
  1. ASACOL [Suspect]
     Indication: COLITIS ULCERATIVE
     Dosage: 2400MG   BID   ORAL
     Route: 048
     Dates: start: 20041104, end: 20041230
  2. ZITHROMYCIN [Concomitant]
  3. ROWASA [Concomitant]

REACTIONS (1)
  - PLATELET COUNT DECREASED [None]
